FAERS Safety Report 6774550-7 (Version None)
Quarter: 2010Q2

REPORT INFORMATION
  Report Type: 
  Country: None (occurrence: None)
  Receive Date: 20100617
  Receipt Date: 20100106
  Transmission Date: 20101027
  Serious: No
  Sender: FDA-Public Use
  Company Number: A0838041A

PATIENT
  Age: 67 Year
  Sex: Female

DRUGS (2)
  1. ZYBAN [Suspect]
     Route: 048
     Dates: start: 19990101, end: 20000101
  2. PREMPRO [Concomitant]

REACTIONS (1)
  - INSOMNIA [None]
